FAERS Safety Report 25182466 (Version 1)
Quarter: 2025Q2

REPORT INFORMATION
  Report Type: Spontaneous
  Country: US (occurrence: US)
  Receive Date: 20250410
  Receipt Date: 20250410
  Transmission Date: 20250717
  Serious: No
  Sender: KINIKSA PHARMACEUTICALS
  Company Number: US-Kiniksa Pharmaceuticals Ltd.-2025KPU000380

PATIENT
  Age: 13 Year
  Sex: Male

DRUGS (3)
  1. ARCALYST [Suspect]
     Active Substance: RILONACEPT
     Indication: Pericarditis
     Dates: start: 202208, end: 202305
  2. ARCALYST [Suspect]
     Active Substance: RILONACEPT
     Dates: start: 2023, end: 202412
  3. ARCALYST [Suspect]
     Active Substance: RILONACEPT
     Dates: start: 2025

REACTIONS (4)
  - Inappropriate schedule of product administration [Recovered/Resolved]
  - Disease recurrence [Unknown]
  - Chest pain [Recovering/Resolving]
  - C-reactive protein increased [Unknown]

NARRATIVE: CASE EVENT DATE: 20230101
